FAERS Safety Report 9705135 (Version 1)
Quarter: 2013Q4

REPORT INFORMATION
  Report Type: Spontaneous
  Country: US (occurrence: US)
  Receive Date: 20131122
  Receipt Date: 20131122
  Transmission Date: 20140711
  Serious: No
  Sender: FDA-Public Use
  Company Number: US-B.I. PHARMACEUTICALS,INC./RIDGEFIELD-2013-BI-37191BP

PATIENT
  Age: 75 Year
  Sex: Female

DRUGS (1)
  1. PRADAXA [Suspect]
     Indication: BLOOD VISCOSITY INCREASED
     Dosage: 150 MG
     Route: 048
     Dates: start: 20131109

REACTIONS (1)
  - Off label use [Not Recovered/Not Resolved]
